FAERS Safety Report 5120823-3 (Version None)
Quarter: 2006Q4

REPORT INFORMATION
  Report Type: 
  Country: None (occurrence: None)
  Receive Date: 20061005
  Receipt Date: 20060921
  Transmission Date: 20070319
  Serious: Yes (Life-Threatening, Hospitalization)
  Sender: FDA-Public Use
  Company Number: JP-BRACCO-BRO-010618

PATIENT
  Sex: Female
  Weight: 60 kg

DRUGS (2)
  1. IOPAMIRON [Suspect]
     Dosage: 2.5 ML/S
     Route: 042
     Dates: start: 20060915, end: 20060915
  2. IOPAMIRON [Suspect]
     Dosage: 2.5 ML/S
     Route: 042
     Dates: start: 20060915, end: 20060915

REACTIONS (16)
  - ACUTE RESPIRATORY DISTRESS SYNDROME [None]
  - ANAPHYLACTIC SHOCK [None]
  - BLOOD PRESSURE DECREASED [None]
  - BREATH SOUNDS ABNORMAL [None]
  - COUGH [None]
  - DISSEMINATED INTRAVASCULAR COAGULATION [None]
  - DYSPNOEA [None]
  - FLUSHING [None]
  - HEPATIC FUNCTION ABNORMAL [None]
  - INCREASED BRONCHIAL SECRETION [None]
  - LARYNGEAL OEDEMA [None]
  - LOSS OF CONSCIOUSNESS [None]
  - OXYGEN SATURATION DECREASED [None]
  - PNEUMONIA ASPIRATION [None]
  - PULMONARY OEDEMA [None]
  - RESPIRATORY ARREST [None]
